FAERS Safety Report 16046658 (Version 2)
Quarter: 2019Q1

REPORT INFORMATION
  Report Type: Report from Study
  Country: US (occurrence: US)
  Receive Date: 20190307
  Receipt Date: 20190327
  Transmission Date: 20190418
  Serious: Yes (Death, Hospitalization)
  Sender: FDA-Public Use
  Company Number: US-TEVA-2019-US-1019697

PATIENT
  Age: 72 Year
  Sex: Female

DRUGS (3)
  1. ASPIRIN. [Suspect]
     Active Substance: ASPIRIN
     Indication: ATRIAL FIBRILLATION
     Route: 065
  2. PROPOFOL. [Suspect]
     Active Substance: PROPOFOL
     Route: 065
  3. APIXABAN [Suspect]
     Active Substance: APIXABAN
     Indication: ATRIAL FIBRILLATION
     Route: 048

REACTIONS (6)
  - Cardiac arrest [Fatal]
  - Cerebral haemorrhage [Fatal]
  - Haemorrhage intracranial [Fatal]
  - Bradycardia [Not Recovered/Not Resolved]
  - Subdural haemorrhage [Fatal]
  - Hypotension [Not Recovered/Not Resolved]
